FAERS Safety Report 14146678 (Version 1)
Quarter: 2017Q4

REPORT INFORMATION
  Report Type: Spontaneous
  Country: US (occurrence: US)
  Receive Date: 20171031
  Receipt Date: 20171031
  Transmission Date: 20180321
  Serious: No
  Sender: FDA-Public Use
  Company Number: US-HETERO CORPORATE-2017HINSPO0540

PATIENT

DRUGS (1)
  1. ABACAVIR. [Suspect]
     Active Substance: ABACAVIR
     Indication: HYPERSENSITIVITY
     Dosage: 300 MG, UNK
     Route: 048

REACTIONS (2)
  - Drug ineffective [Unknown]
  - Product used for unknown indication [Unknown]
